FAERS Safety Report 25076610 (Version 3)
Quarter: 2025Q1

REPORT INFORMATION
  Report Type: Spontaneous
  Country: JP (occurrence: JP)
  Receive Date: 20250313
  Receipt Date: 20250328
  Transmission Date: 20250409
  Serious: Yes (Hospitalization)
  Sender: MERCK SHARP & DOHME LLC
  Company Number: JP-009507513-2263156

PATIENT
  Age: 8 Decade
  Sex: Male

DRUGS (1)
  1. KEYTRUDA [Suspect]
     Active Substance: PEMBROLIZUMAB
     Indication: Non-small cell lung cancer stage III
     Dosage: 200 MG, Q3W
     Route: 041
     Dates: start: 202503

REACTIONS (2)
  - Platelet count decreased [Recovering/Resolving]
  - Small intestinal perforation [Unknown]

NARRATIVE: CASE EVENT DATE: 20250301
